FAERS Safety Report 4783563-6 (Version None)
Quarter: 2005Q3

REPORT INFORMATION
  Report Type: 
  Country: None (occurrence: None)
  Receive Date: 20050929
  Receipt Date: 20050921
  Transmission Date: 20060218
  Serious: Yes (Death)
  Sender: FDA-Public Use
  Company Number: NSADSS2001023983

PATIENT
  Sex: Male
  Weight: 104.78 kg

DRUGS (2)
  1. PROPULSID [Suspect]
     Route: 048
     Dates: start: 19961119
  2. PRILOSEC [Concomitant]

REACTIONS (2)
  - CORONARY ARTERY ATHEROSCLEROSIS [None]
  - PSORIASIS [None]
